FAERS Safety Report 10504553 (Version 1)
Quarter: 2014Q4

REPORT INFORMATION
  Report Type: Spontaneous
  Country: US (occurrence: US)
  Receive Date: 20141008
  Receipt Date: 20141008
  Transmission Date: 20150528
  Serious: No
  Sender: FDA-Public Use
  Company Number: US-EISAI MEDICAL RESEARCH-EC-2014-000523

PATIENT
  Sex: Female
  Weight: 73 kg

DRUGS (3)
  1. PILOCARPINE [Suspect]
     Active Substance: PILOCARPINE
     Dosage: UNKNOWN
     Route: 048
  2. PILOCARPINE [Suspect]
     Active Substance: PILOCARPINE
     Indication: DRY MOUTH
     Dosage: UNKNOWN
     Route: 048
  3. PILOCARPINE [Suspect]
     Active Substance: PILOCARPINE
     Dosage: UNKNOWN
     Route: 048

REACTIONS (1)
  - Drug ineffective [Not Recovered/Not Resolved]
